FAERS Safety Report 6269577-8 (Version None)
Quarter: 2009Q3

REPORT INFORMATION
  Report Type: 
  Country: None (occurrence: None)
  Receive Date: 20090714
  Receipt Date: 20090707
  Transmission Date: 20100115
  Serious: Yes (Other)
  Sender: FDA-Public Use
  Company Number: CHPA2009US14935

PATIENT
  Age: 74 Year
  Sex: Female
  Weight: 74.4 kg

DRUGS (3)
  1. VOLTAREN [Suspect]
     Indication: OSTEOARTHRITIS
     Dosage: 4 G, BID, TOPICAL
     Route: 061
     Dates: start: 20090501, end: 20090707
  2. ESTRACE [Concomitant]
  3. ADVIL [Concomitant]

REACTIONS (2)
  - BLOOD PRESSURE INCREASED [None]
  - KIDNEY INFECTION [None]
